FAERS Safety Report 9322354 (Version 1)
Quarter: 2013Q2

REPORT INFORMATION
  Report Type: Report from Study
  Country: US (occurrence: US)
  Receive Date: 20130531
  Receipt Date: 20130531
  Transmission Date: 20140414
  Serious: Yes (Hospitalization)
  Sender: FDA-Public Use
  Company Number: US-US-EMD SERONO, INC.-7214198

PATIENT
  Age: 31 Year
  Sex: Female

DRUGS (2)
  1. REBIF [Suspect]
     Indication: MULTIPLE SCLEROSIS
     Dates: start: 2003
  2. REBIF [Suspect]
     Route: 058
     Dates: start: 20120921

REACTIONS (1)
  - Sarcoidosis [Recovering/Resolving]
